FAERS Safety Report 6342396-X (Version None)
Quarter: 2009Q3

REPORT INFORMATION
  Report Type: 
  Country: None (occurrence: None)
  Receive Date: 20090908
  Receipt Date: 20010608
  Transmission Date: 20100115
  Serious: No
  Sender: FDA-Public Use
  Company Number: CH-ROCHE-229323

PATIENT

DRUGS (4)
  1. TAMIFLU [Suspect]
     Indication: INFLUENZA
     Route: 064
     Dates: start: 20000119, end: 20000123
  2. NASAL DECONGESTANT NOS [Concomitant]
  3. NASOBOL [Concomitant]
  4. SALICYLATES [Concomitant]

REACTIONS (2)
  - DRUG EXPOSURE DURING PREGNANCY [None]
  - PREGNANCY [None]
